FAERS Safety Report 15554411 (Version 1)
Quarter: 2018Q4

REPORT INFORMATION
  Report Type: Spontaneous
  Country: IS (occurrence: IS)
  Receive Date: 20181026
  Receipt Date: 20181026
  Transmission Date: 20190205
  Serious: Yes (Life-Threatening)
  Sender: FDA-Public Use
  Company Number: IS-ROCHE-2204475

PATIENT
  Age: 76 Year
  Sex: Male
  Weight: 100 kg

DRUGS (10)
  1. FURIX [Concomitant]
     Active Substance: FUROSEMIDE
     Route: 065
  2. MABTHERA [Suspect]
     Active Substance: RITUXIMAB
     Indication: GLOMERULAR VASCULAR DISORDER
     Route: 065
     Dates: start: 20180926, end: 20180926
  3. ALLONOL [Concomitant]
     Active Substance: ALLOPURINOL
     Route: 065
  4. EXELON [Concomitant]
     Active Substance: RIVASTIGMINE TARTRATE
     Route: 065
  5. EPLERENONE. [Concomitant]
     Active Substance: EPLERENONE
     Dosage: INSPRA
     Route: 065
  6. PROPRANOLOL [Concomitant]
     Active Substance: PROPRANOLOL HYDROCHLORIDE
     Route: 065
  7. VENLAFAXIN [Concomitant]
     Active Substance: VENLAFAXINE HYDROCHLORIDE
     Route: 065
  8. PREDNISOLON [Concomitant]
     Active Substance: PREDNISOLONE
     Route: 065
  9. ESOMEPRAZOLE. [Concomitant]
     Active Substance: ESOMEPRAZOLE MAGNESIUM
     Route: 065
  10. RAMIL [Concomitant]
     Route: 065

REACTIONS (7)
  - NIH stroke scale score increased [Not Recovered/Not Resolved]
  - Facial paresis [Not Recovered/Not Resolved]
  - Dysarthria [Not Recovered/Not Resolved]
  - Cerebral infarction [Not Recovered/Not Resolved]
  - Transient ischaemic attack [Not Recovered/Not Resolved]
  - Hemiparesis [Not Recovered/Not Resolved]
  - Sensory disturbance [Not Recovered/Not Resolved]

NARRATIVE: CASE EVENT DATE: 20180926
